FAERS Safety Report 14720682 (Version 1)
Quarter: 2018Q2

REPORT INFORMATION
  Report Type: Spontaneous
  Country: AT (occurrence: AT)
  Receive Date: 20180405
  Receipt Date: 20180405
  Transmission Date: 20180711
  Serious: Yes (Other)
  Sender: FDA-Public Use
  Company Number: AT-BAYER-2017-028908

PATIENT
  Sex: Female

DRUGS (1)
  1. STIVARGA [Suspect]
     Active Substance: REGORAFENIB
     Indication: HEPATOCELLULAR CARCINOMA

REACTIONS (12)
  - Hepatocellular carcinoma [None]
  - Nausea [None]
  - Decreased appetite [None]
  - Contusion [None]
  - Impaired healing [None]
  - Diarrhoea [None]
  - Dysphonia [None]
  - Off label use [None]
  - Fatigue [None]
  - Weight decreased [None]
  - Palmar-plantar erythrodysaesthesia syndrome [Recovered/Resolved]
  - Alopecia [None]
